FAERS Safety Report 5279457-2 (Version None)
Quarter: 2007Q1

REPORT INFORMATION
  Report Type: 
  Country: None (occurrence: None)
  Receive Date: 20070328
  Receipt Date: 20070319
  Transmission Date: 20070707
  Serious: Yes (Hospitalization, Other)
  Sender: FDA-Public Use
  Company Number: US-PFIZER INC-2005049581

PATIENT
  Sex: Female
  Weight: 69.9 kg

DRUGS (4)
  1. BEXTRA [Suspect]
     Indication: NECK PAIN
     Route: 048
  2. BEXTRA [Suspect]
     Indication: LOCAL SWELLING
  3. BEXTRA [Suspect]
     Indication: ARTHRITIS
  4. CELEBREX [Suspect]
     Indication: PAIN

REACTIONS (4)
  - ANXIETY [None]
  - CEREBROVASCULAR ACCIDENT [None]
  - DEPRESSION [None]
  - THROMBOSIS [None]
